FAERS Safety Report 18455638 (Version 10)
Quarter: 2021Q1

REPORT INFORMATION
  Report Type: Spontaneous
  Country: CA (occurrence: CA)
  Receive Date: 20201102
  Receipt Date: 20210331
  Transmission Date: 20210419
  Serious: Yes (Other)
  Sender: FDA-Public Use
  Company Number: CA-CELLTRION INC.-2020CA027697

PATIENT

DRUGS (25)
  1. ACETAMINOPHEN. [Concomitant]
     Active Substance: ACETAMINOPHEN
     Indication: PREMEDICATION
     Dosage: 650 MG
     Route: 048
     Dates: start: 20200831, end: 20200831
  2. SALOFALK [MESALAZINE] [Concomitant]
     Active Substance: MESALAMINE
     Dosage: UNK
     Route: 065
  3. INFLECTRA [Interacting]
     Active Substance: INFLIXIMAB-DYYB
     Dosage: 800MG EVERY 4 WEEKS
     Route: 042
     Dates: start: 20201230
  4. DIPHENHYDRAMINE. [Concomitant]
     Active Substance: DIPHENHYDRAMINE
     Indication: PREMEDICATION
     Dosage: 50 MG
     Route: 042
     Dates: start: 20200831, end: 20200831
  5. DIPHENHYDRAMINE. [Concomitant]
     Active Substance: DIPHENHYDRAMINE
     Dosage: 50 MG
     Dates: start: 20200915, end: 20200915
  6. HYDROCORTISONE. [Concomitant]
     Active Substance: HYDROCORTISONE
     Dosage: 200 MG, UNK
     Route: 042
     Dates: start: 20210322, end: 20210322
  7. INFLECTRA [Interacting]
     Active Substance: INFLIXIMAB-DYYB
     Dosage: 800 MG, AT 2, 6, THEN EVERY 8 WEEKS
     Route: 042
     Dates: start: 20200915
  8. INFLECTRA [Interacting]
     Active Substance: INFLIXIMAB-DYYB
     Dosage: 800MG EVERY 4 WEEKS
     Route: 042
     Dates: start: 20210125
  9. DIPHENHYDRAMINE. [Concomitant]
     Active Substance: DIPHENHYDRAMINE
     Dosage: 50 MG
     Dates: start: 20210322, end: 20210322
  10. TYLENOL WITH CODEINE [Concomitant]
     Active Substance: ACETAMINOPHEN\CODEINE PHOSPHATE
     Indication: PAIN
     Dosage: UNK, AS NEEDED
  11. TYLENOL [Concomitant]
     Active Substance: ACETAMINOPHEN
     Dosage: UNK
     Dates: start: 20200915, end: 20200915
  12. INFLECTRA [Interacting]
     Active Substance: INFLIXIMAB-DYYB
     Dosage: 800MG EVERY 4 WEEKS
     Route: 042
     Dates: start: 20201103
  13. ACETAMINOPHEN. [Concomitant]
     Active Substance: ACETAMINOPHEN
     Dosage: 650 MG
     Dates: start: 20210322, end: 20210322
  14. INFLECTRA [Interacting]
     Active Substance: INFLIXIMAB-DYYB
     Dosage: 800 MG, AT 2, 6, THEN EVERY 8 WEEKS
     Route: 042
     Dates: start: 20200808, end: 20200808
  15. INFLECTRA [Interacting]
     Active Substance: INFLIXIMAB-DYYB
     Dosage: 800MG EVERY 4 WEEKS
     Route: 042
     Dates: start: 20210222
  16. INFLECTRA [Interacting]
     Active Substance: INFLIXIMAB-DYYB
     Dosage: 800MG EVERY 4 WEEKS
     Route: 042
     Dates: start: 20210322
  17. TETRACYCLINE [Concomitant]
     Active Substance: TETRACYCLINE
     Dosage: 1 DF
  18. INFLECTRA [Suspect]
     Active Substance: INFLIXIMAB-DYYB
     Indication: COLITIS ULCERATIVE
     Dosage: 800 MG,AT 0, 2, 6 WEEKS, THEN EVERY 8 WEEKS (INFLECTRA 100MG/ VIAL)
     Route: 042
     Dates: start: 20200808, end: 20200915
  19. HYDROCORTISONE. [Concomitant]
     Active Substance: HYDROCORTISONE
     Indication: PREMEDICATION
     Dosage: 200 MG
     Route: 042
     Dates: start: 20200831, end: 20200831
  20. PREDNISONE. [Concomitant]
     Active Substance: PREDNISONE
     Dosage: UNKNOWN TAPERING FOR 8 WEEKS
     Route: 065
     Dates: start: 202007
  21. INFLECTRA [Interacting]
     Active Substance: INFLIXIMAB-DYYB
     Dosage: 800 MG, AT 2, 6, THEN EVERY 8 WEEKS
     Route: 042
     Dates: start: 20200831, end: 20200831
  22. INFLECTRA [Interacting]
     Active Substance: INFLIXIMAB-DYYB
     Dosage: 800MG EVERY 4 WEEKS
     Route: 042
     Dates: start: 20201202
  23. INFLECTRA [Interacting]
     Active Substance: INFLIXIMAB-DYYB
     Dosage: 800MG EVERY 4 WEEKS
     Route: 042
     Dates: start: 20201230
  24. FLAGYL [Interacting]
     Active Substance: METRONIDAZOLE\METRONIDAZOLE HYDROCHLORIDE
     Dosage: UNK
     Route: 065
  25. HYDROCORTISONE. [Concomitant]
     Active Substance: HYDROCORTISONE
     Dosage: 200 MG, UNK
     Dates: start: 20200915, end: 20200915

REACTIONS (17)
  - Fatigue [Unknown]
  - Haemorrhage [Not Recovered/Not Resolved]
  - Off label use [Unknown]
  - Throat irritation [Recovered/Resolved]
  - Product administration error [Unknown]
  - Drug interaction [Unknown]
  - Arthralgia [Not Recovered/Not Resolved]
  - Clostridium difficile colitis [Not Recovered/Not Resolved]
  - Inappropriate schedule of product administration [Unknown]
  - Dizziness [Recovered/Resolved]
  - Abdominal pain [Unknown]
  - Arthropathy [Not Recovered/Not Resolved]
  - Heart rate increased [Unknown]
  - Hyperhidrosis [Recovered/Resolved]
  - Blood pressure increased [Not Recovered/Not Resolved]
  - Condition aggravated [Not Recovered/Not Resolved]
  - Nausea [Recovered/Resolved]

NARRATIVE: CASE EVENT DATE: 2020
